FAERS Safety Report 16826487 (Version 2)
Quarter: 2019Q4

REPORT INFORMATION
  Report Type: Spontaneous
  Country: FR (occurrence: FR)
  Receive Date: 20190919
  Receipt Date: 20191003
  Transmission Date: 20200122
  Serious: Yes (Other)
  Sender: FDA-Public Use
  Company Number: FR-PFIZER INC-2019338206

PATIENT
  Age: 70 Year
  Sex: Male
  Weight: 93 kg

DRUGS (1)
  1. CRIZOTINIB [Suspect]
     Active Substance: CRIZOTINIB
     Dosage: 250 UNK, 2X/DAY
     Route: 048
     Dates: start: 20190712

REACTIONS (9)
  - Hypertension [Not Recovered/Not Resolved]
  - Burning sensation [Unknown]
  - Dyspnoea exertional [Not Recovered/Not Resolved]
  - Cough [Not Recovered/Not Resolved]
  - Fatigue [Not Recovered/Not Resolved]
  - Decreased appetite [Not Recovered/Not Resolved]
  - Haemorrhage [Not Recovered/Not Resolved]
  - Visual impairment [Not Recovered/Not Resolved]
  - Productive cough [Not Recovered/Not Resolved]

NARRATIVE: CASE EVENT DATE: 20190803
